FAERS Safety Report 9168083 (Version 1)
Quarter: 2013Q1

REPORT INFORMATION
  Report Type: Spontaneous
  Country: RU (occurrence: None)
  Receive Date: 20130307
  Receipt Date: 20130307
  Transmission Date: 20140127
  Serious: No
  Sender: FDA-Public Use
  Company Number: 1302RUS011097

PATIENT
  Sex: 0

DRUGS (1)
  1. CEDAX (CEFTIBUTEN) ORAL SUSPENSION, 60 ML [Suspect]

REACTIONS (2)
  - Hypersensitivity [None]
  - Rash [None]
